FAERS Safety Report 10376541 (Version 1)
Quarter: 2014Q3

REPORT INFORMATION
  Report Type: Spontaneous
  Country: US (occurrence: US)
  Receive Date: 20140811
  Receipt Date: 20140811
  Transmission Date: 20150326
  Serious: Yes (Life-Threatening, Other)
  Sender: FDA-Public Use
  Company Number: US-TEVA-499891USA

PATIENT
  Age: 8 Decade
  Sex: Female

DRUGS (4)
  1. DOFETILIDE [Concomitant]
     Active Substance: DOFETILIDE
     Route: 065
  2. THIAMAZOLE [Suspect]
     Active Substance: METHIMAZOLE
     Indication: HYPERTHYROIDISM
     Dosage: 30MG DAILY, DOSE INCREASED
     Route: 065
  3. THIAMAZOLE [Suspect]
     Active Substance: METHIMAZOLE
     Indication: HYPERTHYROIDISM
     Dosage: 60MG DAILY
     Route: 065
  4. AMIODARONE [Suspect]
     Active Substance: AMIODARONE
     Indication: PRODUCT USED FOR UNKNOWN INDICATION
     Route: 065

REACTIONS (2)
  - Hyperthyroidism [Unknown]
  - Febrile neutropenia [Unknown]
